FAERS Safety Report 13708184 (Version 1)
Quarter: 2017Q2

REPORT INFORMATION
  Report Type: Report from Study
  Country: None (occurrence: US)
  Receive Date: 20170630
  Receipt Date: 20170630
  Transmission Date: 20170830
  Serious: No
  Sender: FDA-Public Use
  Company Number: US-IPSEN BIOPHARMACEUTICALS, INC.-2015-7305

PATIENT
  Age: 59 Year
  Sex: Male

DRUGS (1)
  1. SOMATULINE DEPOT [Suspect]
     Active Substance: LANREOTIDE ACETATE
     Indication: ACROMEGALY
     Dosage: NOT REPORTED
     Route: 065

REACTIONS (15)
  - Coordination abnormal [Unknown]
  - Influenza like illness [Unknown]
  - Amnesia [Unknown]
  - Adverse event [Unknown]
  - Disorientation [Unknown]
  - Abdominal pain upper [Unknown]
  - Pain [Unknown]
  - Depression [Unknown]
  - Gastrointestinal disorder [Unknown]
  - Administration related reaction [Unknown]
  - Cognitive disorder [Unknown]
  - Diarrhoea [Unknown]
  - Injection site pain [Unknown]
  - Fatigue [Unknown]
  - Headache [Unknown]
